FAERS Safety Report 10566122 (Version 1)
Quarter: 2014Q4

REPORT INFORMATION
  Report Type: Spontaneous
  Country: US (occurrence: US)
  Receive Date: 20141105
  Receipt Date: 20141105
  Transmission Date: 20150529
  Serious: Yes (Hospitalization)
  Sender: FDA-Public Use
  Company Number: US-PFIZER INC-2014304416

PATIENT
  Age: 37 Year
  Sex: Female
  Weight: 92.5 kg

DRUGS (1)
  1. ZITHROMAX [Suspect]
     Active Substance: AZITHROMYCIN DIHYDRATE
     Indication: SINUSITIS
     Dosage: 250 MG, (TWO TABLETS FOR FIRST DOSE; FOLLOWED BY 2 TABLETS)
     Dates: start: 20141031, end: 20141103

REACTIONS (14)
  - Nausea [Not Recovered/Not Resolved]
  - Dizziness [Unknown]
  - Diarrhoea [Unknown]
  - Chest pain [Unknown]
  - Fatigue [Unknown]
  - Swollen tongue [Not Recovered/Not Resolved]
  - Heart rate increased [Not Recovered/Not Resolved]
  - Hot flush [Not Recovered/Not Resolved]
  - Abdominal discomfort [Not Recovered/Not Resolved]
  - Dry mouth [Not Recovered/Not Resolved]
  - Gait disturbance [Unknown]
  - Oropharyngeal pain [Not Recovered/Not Resolved]
  - Hearing impaired [Unknown]
  - Tremor [Not Recovered/Not Resolved]

NARRATIVE: CASE EVENT DATE: 20141031
